FAERS Safety Report 5068469-X (Version None)
Quarter: 2006Q3

REPORT INFORMATION
  Report Type: 
  Country: None (occurrence: None)
  Receive Date: 20060802
  Receipt Date: 20051013
  Transmission Date: 20061208
  Serious: Yes (Hospitalization, Other)
  Sender: FDA-Public Use
  Company Number: US-BRISTOL-MYERS SQUIBB COMPANY-13143995

PATIENT
  Age: 81 Year
  Sex: Female
  Weight: 58 kg

DRUGS (5)
  1. COUMADIN [Suspect]
     Indication: ATRIAL FIBRILLATION
     Dates: start: 20040101, end: 20050101
  2. DILTIAZEM HCL [Concomitant]
  3. ATIVAN [Concomitant]
  4. ACETAMINOPHEN [Concomitant]
  5. IBUPROFEN [Concomitant]

REACTIONS (2)
  - CONTUSION [None]
  - INTERNATIONAL NORMALISED RATIO INCREASED [None]
